FAERS Safety Report 12991917 (Version 1)
Quarter: 2016Q4

REPORT INFORMATION
  Report Type: Spontaneous
  Country: US (occurrence: US)
  Receive Date: 20161201
  Receipt Date: 20161201
  Transmission Date: 20170207
  Serious: No
  Sender: FDA-Public Use
  Company Number: US-PFIZER INC-2016552117

PATIENT
  Age: 47 Year
  Sex: Male
  Weight: 95.7 kg

DRUGS (8)
  1. GLUCOPHAGE [Concomitant]
     Active Substance: METFORMIN HYDROCHLORIDE
     Dosage: 850 MG, 2X/DAY (BEFORE BREAKFAST AND DINNER)
     Route: 048
  2. VIAGRA [Suspect]
     Active Substance: SILDENAFIL CITRATE
     Dosage: 100 MG, AS NEEDED
  3. ROBITUSSIN AC [Concomitant]
     Active Substance: CODEINE PHOSPHATE\GUAIFENESIN
     Dosage: 5 ML, AS NEEDED (CODEINE PHOSPHATE: 10 MG/5ML GUAIFENESIN: 100 MG/ML)
     Route: 048
  4. PRINZIDE [Concomitant]
     Active Substance: HYDROCHLOROTHIAZIDE\LISINOPRIL
     Dosage: 1 DF, DAILY[(LISINOPRIL: 20 MG, HYDROCHLOROTHIAZIDE: 25 MG)]
     Route: 048
  5. ZESTORETIC [Concomitant]
     Active Substance: HYDROCHLOROTHIAZIDE\LISINOPRIL
     Dosage: 1 DF, DAILY  [(LISINOPRIL: 20 MG, HYDROCHLOROTHIAZIDE: 25 MG)]
     Route: 048
  6. LIPITOR [Concomitant]
     Active Substance: ATORVASTATIN CALCIUM
     Dosage: 20 MG, 1X/DAY (ONCE EVERY NIGHT AT BEDTIME)
     Route: 048
  7. ZITHROMAX [Concomitant]
     Active Substance: AZITHROMYCIN DIHYDRATE
     Dosage: UNK (250 MG, TAKE 2 TABLET ON DAY 1, THEN TAKE 1 TABLET UNTIL DONE)
     Route: 048
  8. ZYRTEC [Concomitant]
     Active Substance: CETIRIZINE HYDROCHLORIDE
     Dosage: 10 MG, DAILY (1 TAB)
     Route: 048

REACTIONS (3)
  - Sinus headache [Unknown]
  - Facial pain [Unknown]
  - Sinus congestion [Unknown]
